FAERS Safety Report 15403899 (Version 1)
Quarter: 2018Q3

REPORT INFORMATION
  Report Type: Spontaneous
  Country: US (occurrence: US)
  Receive Date: 20180919
  Receipt Date: 20180919
  Transmission Date: 20181010
  Serious: No
  Sender: FDA-Public Use
  Company Number: US-SA-2018SA260391

PATIENT
  Age: 74 Year
  Sex: Female

DRUGS (12)
  1. ALPRAZOLAM. [Concomitant]
     Active Substance: ALPRAZOLAM
  2. LATANOPROST. [Concomitant]
     Active Substance: LATANOPROST
  3. GLIMEPIRIDE. [Concomitant]
     Active Substance: GLIMEPIRIDE
  4. PREDNISOLONE. [Concomitant]
     Active Substance: PREDNISOLONE
  5. ASPIRIN [ACETYLSALICYLIC ACID] [Concomitant]
     Active Substance: ASPIRIN
  6. KEVZARA [Suspect]
     Active Substance: SARILUMAB
     Dosage: UNK UNK, QOW
     Route: 058
     Dates: start: 20180817
  7. SIMVASTATIN. [Concomitant]
     Active Substance: SIMVASTATIN
  8. CEPHALEXINE [Concomitant]
     Active Substance: CEPHALEXIN
  9. TRAMADOL. [Concomitant]
     Active Substance: TRAMADOL
  10. METFORMIN [Concomitant]
     Active Substance: METFORMIN HYDROCHLORIDE
  11. PLAVIX [Concomitant]
     Active Substance: CLOPIDOGREL BISULFATE
  12. FOLIC ACID. [Concomitant]
     Active Substance: FOLIC ACID

REACTIONS (5)
  - Pyrexia [Unknown]
  - Cough [Unknown]
  - Urinary tract infection [Unknown]
  - Myalgia [Unknown]
  - Gait disturbance [Unknown]
